FAERS Safety Report 17084367 (Version 4)
Quarter: 2020Q1

REPORT INFORMATION
  Report Type: Spontaneous
  Country: US (occurrence: US)
  Receive Date: 20191127
  Receipt Date: 20200306
  Transmission Date: 20200409
  Serious: No
  Sender: FDA-Public Use
  Company Number: US-PFIZER INC-2019255833

PATIENT
  Age: 75 Year
  Sex: Female

DRUGS (2)
  1. LYRICA [Suspect]
     Active Substance: PREGABALIN
     Indication: EPILEPSY
     Dosage: 50 MG, DAILY (2 A DAY/TWO 25 MG LYRICA A DAY)
     Route: 048
  2. LYRICA [Suspect]
     Active Substance: PREGABALIN
     Indication: PETIT MAL EPILEPSY
     Dosage: 1 DF, 2X/DAY (1 PO BID)
     Route: 048

REACTIONS (2)
  - Product prescribing error [Unknown]
  - Product dispensing error [Unknown]

NARRATIVE: CASE EVENT DATE: 20190612
